FAERS Safety Report 14925812 (Version 7)
Quarter: 2018Q3

REPORT INFORMATION
  Report Type: Report from Study
  Country: US (occurrence: US)
  Receive Date: 20180522
  Receipt Date: 20180911
  Transmission Date: 20181010
  Serious: Yes (Hospitalization)
  Sender: FDA-Public Use
  Company Number: US-ACTELION-A-NJ2018-171097

PATIENT
  Age: 1 Year
  Sex: Female
  Weight: 10.88 kg

DRUGS (6)
  1. TRACLEER [Suspect]
     Active Substance: BOSENTAN
     Dosage: 2 MG/KG, BID
     Route: 048
     Dates: start: 20171209
  2. TRACLEER [Suspect]
     Active Substance: BOSENTAN
     Dosage: 32.5 MG, BID
     Route: 048
  3. TRACLEER [Suspect]
     Active Substance: BOSENTAN
     Dosage: 62.5 MG, BID
     Route: 048
  4. TRACLEER [Suspect]
     Active Substance: BOSENTAN
     Dosage: 20 MG, BID VIA FEEDING TUBE
     Route: 048
  5. REVATIO [Concomitant]
     Active Substance: SILDENAFIL CITRATE
  6. TRACLEER [Suspect]
     Active Substance: BOSENTAN
     Indication: PULMONARY HYPERTENSION
     Dosage: 31.25 MG, BID
     Route: 048

REACTIONS (11)
  - Gastrointestinal disorder [Unknown]
  - Respiratory disorder [Unknown]
  - Tracheostomy [Unknown]
  - Abdominal operation [Unknown]
  - Hypoxic-ischaemic encephalopathy [Unknown]
  - Viral upper respiratory tract infection [Unknown]
  - Respiratory distress [Unknown]
  - Septic shock [Unknown]
  - Bronchiolitis [Unknown]
  - Staphylococcal sepsis [Unknown]
  - Infection [Unknown]
